FAERS Safety Report 6304032-8 (Version None)
Quarter: 2009Q3

REPORT INFORMATION
  Report Type: 
  Country: None (occurrence: None)
  Receive Date: 20090810
  Receipt Date: 20090730
  Transmission Date: 20100115
  Serious: Yes (Other)
  Sender: FDA-Public Use
  Company Number: US-PFIZER INC-2009251743

PATIENT
  Age: 70 Year
  Sex: Female

DRUGS (2)
  1. ZYRTEC [Suspect]
     Indication: HYPERSENSITIVITY
     Dosage: 1/2 TABLET ONCE (10 MG)
     Route: 048
     Dates: start: 20090730
  2. ATROVENT [Concomitant]
     Indication: EMPHYSEMA
     Dosage: UNK
     Route: 055
     Dates: start: 20070101

REACTIONS (5)
  - DIZZINESS [None]
  - DYSPNOEA [None]
  - INCORRECT DOSE ADMINISTERED [None]
  - VISION BLURRED [None]
  - WRONG DRUG ADMINISTERED [None]
